FAERS Safety Report 12317527 (Version 2)
Quarter: 2016Q2

REPORT INFORMATION
  Report Type: Spontaneous
  Country: US (occurrence: US)
  Receive Date: 20160429
  Receipt Date: 20160517
  Transmission Date: 20160815
  Serious: No
  Sender: FDA-Public Use
  Company Number: US-PFIZER INC-2016235106

PATIENT
  Age: 54 Year
  Sex: Female
  Weight: 54.43 kg

DRUGS (2)
  1. LYRICA [Suspect]
     Active Substance: PREGABALIN
     Indication: FIBROMYALGIA
     Dosage: 150 MG, 2X/DAY
  2. LYRICA [Suspect]
     Active Substance: PREGABALIN
     Dosage: 225 MG, 3X/DAY

REACTIONS (5)
  - Decreased interest [Unknown]
  - Pain [Unknown]
  - Condition aggravated [Unknown]
  - Fatigue [Unknown]
  - Depression [Unknown]
